FAERS Safety Report 25893533 (Version 1)
Quarter: 2025Q4

REPORT INFORMATION
  Report Type: Report from Study
  Country: US (occurrence: US)
  Receive Date: 20251008
  Receipt Date: 20251008
  Transmission Date: 20260119
  Serious: Yes (Other)
  Sender: ALEXION PHARMACEUTICALS
  Company Number: 202502USA027253US

PATIENT
  Age: 18 Year
  Sex: Female

DRUGS (1)
  1. STRENSIQ [Suspect]
     Active Substance: ASFOTASE ALFA
     Indication: Phosphorus metabolism disorder
     Dosage: 40 MILLIGRAM SIX TIMES PER WEEK
     Route: 065

REACTIONS (5)
  - Neuropathy peripheral [Unknown]
  - Fatigue [Unknown]
  - Pain [Unknown]
  - Blood potassium decreased [Unknown]
  - Walking distance test abnormal [Unknown]
